FAERS Safety Report 6815256-5 (Version None)
Quarter: 2010Q3

REPORT INFORMATION
  Report Type: 
  Country: None (occurrence: None)
  Receive Date: 20100702
  Receipt Date: 20100621
  Transmission Date: 20110219
  Serious: Yes (Hospitalization)
  Sender: FDA-Public Use
  Company Number: GB-TEVA-238917ISR

PATIENT
  Age: 1 Week
  Sex: Female

DRUGS (3)
  1. TRIMETHOPRIM [Suspect]
     Route: 064
  2. BACLOFEN [Suspect]
     Route: 064
  3. OXYBUTYNIN CHLORIDE [Suspect]
     Route: 064

REACTIONS (8)
  - CONVULSION NEONATAL [None]
  - DRUG EXPOSURE DURING PREGNANCY [None]
  - DRUG WITHDRAWAL SYNDROME [None]
  - DYSKINESIA [None]
  - EPILEPSY [None]
  - GRAND MAL CONVULSION [None]
  - ISCHAEMIA [None]
  - TACHYCARDIA FOETAL [None]
